FAERS Safety Report 5662338-X (Version None)
Quarter: 2008Q1

REPORT INFORMATION
  Report Type: 
  Country: None (occurrence: None)
  Receive Date: 20080312
  Receipt Date: 20080304
  Transmission Date: 20080703
  Serious: Yes (Other)
  Sender: FDA-Public Use
  Company Number: US-GENENTECH-257165

PATIENT
  Sex: Male

DRUGS (4)
  1. AVASTIN [Suspect]
     Indication: COLORECTAL CANCER
  2. FLUOROURACIL [Concomitant]
     Indication: COLORECTAL CANCER
  3. LEUCOVORIN CALCIUM [Concomitant]
     Indication: COLORECTAL CANCER
  4. OXALIPLATIN [Concomitant]
     Indication: COLORECTAL CANCER

REACTIONS (1)
  - NECROTISING OESOPHAGITIS [None]
